FAERS Safety Report 8216954-1 (Version None)
Quarter: 2012Q1

REPORT INFORMATION
  Report Type: 
  Country: None (occurrence: None)
  Receive Date: 20120319
  Receipt Date: 20120307
  Transmission Date: 20120608
  Serious: Yes (Other)
  Sender: FDA-Public Use
  Company Number: FR-BRISTOL-MYERS SQUIBB COMPANY-16446007

PATIENT
  Age: 65 Year
  Sex: Male

DRUGS (10)
  1. METFORMIN HCL [Suspect]
     Indication: TYPE 2 DIABETES MELLITUS
     Route: 048
     Dates: start: 20071001
  2. RABEPRAZOLE SODIUM [Suspect]
     Dosage: 1 DF: 1 GASTRO-RESISTANT TABLET  PARIET 20 MG
     Route: 048
     Dates: start: 20090101
  3. DIAMICRON [Suspect]
     Indication: TYPE 2 DIABETES MELLITUS
     Dosage: DIAMICRON 30MG, MODIFIED RELEASE TABLET
     Route: 048
     Dates: start: 20080501, end: 20090501
  4. ATORVASTATIN [Suspect]
     Dosage: 1 FILM-COATED TABLET  TAHOR 10 MG, FILM-COATED TABLET
     Route: 048
     Dates: start: 20090101
  5. CLONAZEPAM [Suspect]
     Dosage: RIVOTRIL 2.5 MG/ML, ORAL SOLUTION IN DROPS
     Route: 048
     Dates: start: 20090101
  6. IRBESARTAN [Suspect]
     Dosage: 1 DF: 1 TABS
     Route: 048
     Dates: start: 20090901
  7. AVANDAMET [Suspect]
     Indication: TYPE 2 DIABETES MELLITUS
     Dosage: 1 DF: 1 FILM-COATED TABLET DAILY FORMULATION:2 MG/1000MG, FILM-COATED TABLET
     Route: 048
     Dates: end: 20071001
  8. JANUVIA [Suspect]
     Indication: TYPE 2 DIABETES MELLITUS
     Route: 048
     Dates: start: 20090501
  9. AVANDIA [Suspect]
     Indication: TYPE 2 DIABETES MELLITUS
     Dosage: 1 DF: 1 FILM-COATED TABLET  AVANDIA 8MG, FILM-COATED TABLET
     Route: 048
     Dates: start: 20071001, end: 20101201
  10. ACTOS [Suspect]
     Indication: TYPE 2 DIABETES MELLITUS
     Route: 048
     Dates: start: 20101201, end: 20110701

REACTIONS (1)
  - PROSTATE CANCER [None]
